FAERS Safety Report 6843792-4 (Version None)
Quarter: 2010Q3

REPORT INFORMATION
  Report Type: 
  Country: None (occurrence: None)
  Receive Date: 20100715
  Receipt Date: 20100701
  Transmission Date: 20110219
  Serious: Yes (Hospitalization)
  Sender: FDA-Public Use
  Company Number: PHHY2010FR37355

PATIENT
  Sex: Male
  Weight: 90 kg

DRUGS (6)
  1. RASILEZ [Suspect]
     Indication: HYPERTENSION
     Dosage: 150 MG, UNK
  2. TENORMIN [Suspect]
     Dosage: 50 MG, UNK
     Dates: start: 19980101
  3. TRIATEC [Concomitant]
     Dosage: 10 MG, UNK
     Dates: start: 19980101
  4. KARDEGIC [Concomitant]
     Dosage: 75 MG
     Dates: start: 19980101
  5. OMACOR [Concomitant]
     Dosage: ONCE DAILY
     Dates: start: 19980101
  6. EZETIMIBE/SIMVASTATIN [Concomitant]
     Dosage: 10/40 MG
     Dates: start: 19980101

REACTIONS (6)
  - ASTHENIA [None]
  - BRADYCARDIA [None]
  - CORONARY ARTERIAL STENT INSERTION [None]
  - CORONARY ARTERY DISEASE [None]
  - DIZZINESS [None]
  - EXTRASYSTOLES [None]
